FAERS Safety Report 25943214 (Version 1)
Quarter: 2025Q4

REPORT INFORMATION
  Report Type: Spontaneous
  Country: US (occurrence: None)
  Receive Date: 20251020
  Receipt Date: 20251020
  Transmission Date: 20260118
  Serious: Yes (Death)
  Sender: FDA-CTU
  Company Number: None

PATIENT
  Age: 62 Year
  Sex: Male

DRUGS (1)
  1. SPRAVATO [Suspect]
     Active Substance: ESKETAMINE
     Indication: Major depression
     Dosage: ADMINISTER 84 MG INTRANASALLY TWICE WEEKLY
     Route: 045

REACTIONS (1)
  - Death [None]

NARRATIVE: CASE EVENT DATE: 20250414
